FAERS Safety Report 12763722 (Version 1)
Quarter: 2016Q3

REPORT INFORMATION
  Report Type: Spontaneous
  Country: US (occurrence: US)
  Receive Date: 20160915
  Receipt Date: 20160915
  Transmission Date: 20161109
  Serious: No
  Sender: FDA-Public Use
  Company Number: None

PATIENT
  Sex: Female

DRUGS (1)
  1. FORTEO [Suspect]
     Active Substance: TERIPARATIDE
     Indication: OSTEOPOROSIS
     Route: 058
     Dates: end: 20160720

REACTIONS (6)
  - Therapy cessation [None]
  - Decreased appetite [None]
  - Weight decreased [None]
  - Blood pressure decreased [None]
  - Nausea [None]
  - Vomiting [None]
